FAERS Safety Report 8177228-0 (Version None)
Quarter: 2012Q1

REPORT INFORMATION
  Report Type: 
  Country: None (occurrence: None)
  Receive Date: 20120124
  Receipt Date: 20111006
  Transmission Date: 20120608
  Serious: No
  Sender: FDA-Public Use
  Company Number: US-006502

PATIENT
  Age: 50 Year
  Sex: Male
  Weight: 162.3877 kg

DRUGS (4)
  1. CIPRO [Suspect]
  2. DIOVAN [Concomitant]
  3. METFORMIN HCL [Concomitant]
  4. FIRMAGON [Suspect]
     Indication: PROSTATE CANCER
     Dosage: (240 MG 1X SUBCUTANEOUS)
     Route: 058
     Dates: start: 20111003, end: 20111108

REACTIONS (4)
  - DIZZINESS [None]
  - INJECTION SITE INDURATION [None]
  - INJECTION SITE WARMTH [None]
  - INJECTION SITE PAIN [None]
